FAERS Safety Report 5503778-9 (Version None)
Quarter: 2007Q4

REPORT INFORMATION
  Report Type: 
  Country: None (occurrence: None)
  Receive Date: 20071101
  Receipt Date: 20071031
  Transmission Date: 20080405
  Serious: Yes (Death, Life-Threatening, Other)
  Sender: FDA-Public Use
  Company Number: US-BRISTOL-MYERS SQUIBB COMPANY-13746854

PATIENT
  Age: 45 Year
  Sex: Male

DRUGS (12)
  1. CARBOPLATIN [Suspect]
     Indication: NON-SMALL CELL LUNG CANCER
     Dosage: TAKEN 934 MG IV ON 08FEB07-08FEB07 (1 DAY), 28-FEB07-28FEB07 (1 DAY) AND 21MAR07-21MAR07 (1 DAY).
     Route: 042
     Dates: start: 20070321, end: 20070321
  2. PACLITAXEL [Suspect]
     Indication: NON-SMALL CELL LUNG CANCER
     Dosage: TAKEN 438 MG IV ON 08FEB07 (1 DAY), 28FEB07 (1 DAY), AND 21MAR07 (1 DAY).
     Route: 042
     Dates: start: 20070321, end: 20070321
  3. BLINDED: PLACEBO [Suspect]
     Indication: NON-SMALL CELL LUNG CANCER
     Route: 048
     Dates: start: 20070209
  4. BLINDED: SORAFENIB [Suspect]
     Indication: NON-SMALL CELL LUNG CANCER
     Dosage: TAKEN 800 MG ORAL ON 09FEB07-26FEB07  2 WEEKS 4 DAYS, 01MAR07-18MAR07 2 WEEKS 4 DAYS.
     Route: 048
     Dates: start: 20070209
  5. ASPIRIN [Concomitant]
     Indication: PROPHYLAXIS
     Route: 048
     Dates: start: 20040101, end: 20070131
  6. SENOKOT [Concomitant]
     Indication: CONSTIPATION
     Route: 048
     Dates: start: 20070214
  7. CLEOCIN HYDROCHLORIDE [Concomitant]
     Indication: INFECTION
     Route: 048
     Dates: start: 20070322, end: 20070404
  8. AMBIEN [Concomitant]
     Indication: INSOMNIA
     Route: 048
     Dates: start: 20070322
  9. ROBITUSSIN [Concomitant]
     Indication: COUGH
     Dosage: 1 DOSAGEFORM = 5-10 ML
     Route: 048
     Dates: start: 20070312
  10. MUCINEX [Concomitant]
     Indication: COUGH
     Route: 048
     Dates: start: 20070321
  11. GANODERMA LUCIDUM [Concomitant]
     Indication: VITAMIN SUPPLEMENTATION
     Route: 048
  12. NONSTEROIDAL ANTI-INFLAMMATORY [Concomitant]
     Indication: BACK PAIN
     Dosage: 1 DOSAAGEFORM = 220-440 MG
     Route: 048
     Dates: start: 20070201

REACTIONS (2)
  - MALIGNANT NEOPLASM PROGRESSION [None]
  - PULMONARY HAEMORRHAGE [None]
